FAERS Safety Report 9773820 (Version 1)
Quarter: 2013Q4

REPORT INFORMATION
  Report Type: Spontaneous
  Country: US (occurrence: US)
  Receive Date: 20131220
  Receipt Date: 20131220
  Transmission Date: 20140711
  Serious: Yes (Hospitalization)
  Sender: FDA-Public Use
  Company Number: 2012SP004849

PATIENT
  Age: 23 Year
  Sex: Female
  Weight: 71.4 kg

DRUGS (6)
  1. VANCOMYCIN [Suspect]
     Indication: FEBRILE NEUTROPENIA
     Route: 042
     Dates: start: 20121127, end: 20121202
  2. VANCOMYCIN [Suspect]
     Indication: FEBRILE NEUTROPENIA
  3. CEFEPIME [Suspect]
     Indication: FEBRILE NEUTROPENIA
     Route: 042
     Dates: start: 20121127, end: 20121129
  4. GEMTUZUMAB OZOGAMICIN [Suspect]
     Indication: ACUTE PROMYELOCYTIC LEUKAEMIA
     Route: 042
     Dates: start: 20120309, end: 20121115
  5. IBUPROFEN /00109205/ [Suspect]
     Indication: PAIN
     Route: 048
     Dates: start: 20121127, end: 20121203
  6. FLUCONAZOLE [Concomitant]
     Indication: PRODUCT USED FOR UNKNOWN INDICATION

REACTIONS (2)
  - Blood creatinine increased [Recovered/Resolved]
  - Renal failure acute [Recovered/Resolved]
